FAERS Safety Report 12595308 (Version 1)
Quarter: 2016Q3

REPORT INFORMATION
  Report Type: Spontaneous
  Country: US (occurrence: US)
  Receive Date: 20160726
  Receipt Date: 20160726
  Transmission Date: 20161109
  Serious: No
  Sender: FDA-Public Use
  Company Number: US-ENDO PHARMACEUTICALS INC.-2015-002068

PATIENT
  Age: 67 Year
  Sex: Male
  Weight: 83.08 kg

DRUGS (4)
  1. SOTALOL HYDROCHLORIDE TABLETS [Concomitant]
     Active Substance: SOTALOL HYDROCHLORIDE
     Route: 065
  2. LIPITOR [Suspect]
     Active Substance: ATORVASTATIN CALCIUM
     Indication: PRODUCT USED FOR UNKNOWN INDICATION
     Route: 065
  3. DILTIAZEM HYDROCHLORIDE TABLETS [Concomitant]
     Route: 065
  4. LISINOPRIL TABLETS 20MG [Suspect]
     Active Substance: LISINOPRIL
     Indication: ANTICOAGULANT THERAPY
     Route: 065

REACTIONS (3)
  - Chest pain [Not Recovered/Not Resolved]
  - Off label use [Not Recovered/Not Resolved]
  - Musculoskeletal pain [Not Recovered/Not Resolved]

NARRATIVE: CASE EVENT DATE: 201505
